FAERS Safety Report 16637256 (Version 1)
Quarter: 2019Q3

REPORT INFORMATION
  Report Type: Spontaneous
  Country: US (occurrence: US)
  Receive Date: 20190726
  Receipt Date: 20190726
  Transmission Date: 20191004
  Serious: Yes (Hospitalization)
  Sender: FDA-Public Use
  Company Number: US-VERTEX PHARMACEUTICALS-2019-006798

PATIENT
  Age: 21 Year
  Sex: Male

DRUGS (3)
  1. PULMOZYME [Concomitant]
     Active Substance: DORNASE ALFA
     Dosage: UNK
  2. ORKAMBI [Suspect]
     Active Substance: IVACAFTOR\LUMACAFTOR
     Indication: CYSTIC FIBROSIS
     Dosage: 200/125 MG TABLETS, BID
     Route: 048
  3. TOBI PODHALER [Concomitant]
     Active Substance: TOBRAMYCIN
     Dosage: UNK

REACTIONS (1)
  - Infection [Unknown]

NARRATIVE: CASE EVENT DATE: 20190702
